FAERS Safety Report 8288699-3 (Version None)
Quarter: 2012Q2

REPORT INFORMATION
  Report Type: 
  Country: None (occurrence: None)
  Receive Date: 20120417
  Receipt Date: 20120405
  Transmission Date: 20120825
  Serious: Yes (Hospitalization, Other)
  Sender: FDA-Public Use
  Company Number: US-BIOGENIDEC-2011BI042911

PATIENT
  Age: 61 Year
  Sex: Female

DRUGS (1)
  1. TYSABRI [Suspect]
     Indication: MULTIPLE SCLEROSIS
     Route: 042
     Dates: start: 20100331, end: 20111101

REACTIONS (13)
  - URINARY RETENTION [None]
  - OBSTRUCTIVE UROPATHY [None]
  - RENAL SCAN ABNORMAL [None]
  - PROCEDURAL COMPLICATION [None]
  - SMALL INTESTINAL OBSTRUCTION [None]
  - URETERIC STENOSIS [None]
  - DEVICE RELATED INFECTION [None]
  - FLANK PAIN [None]
  - NAUSEA [None]
  - BACTERIAL PYELONEPHRITIS [None]
  - INCISION SITE INFECTION [None]
  - KIDNEY ENLARGEMENT [None]
  - MULTIPLE SCLEROSIS RELAPSE [None]
